FAERS Safety Report 7716035-7 (Version None)
Quarter: 2011Q3

REPORT INFORMATION
  Report Type: 
  Country: None (occurrence: None)
  Receive Date: 20110829
  Receipt Date: 20110824
  Transmission Date: 20111222
  Serious: Yes (Life-Threatening, Other)
  Sender: FDA-Public Use
  Company Number: CA-GLAXOSMITHKLINE-A0796699A

PATIENT
  Sex: Female

DRUGS (12)
  1. LACTULOSE [Concomitant]
  2. SENOKOT [Concomitant]
  3. LORAZEPAM [Concomitant]
  4. METHOTRIMEPRAZINE [Concomitant]
  5. RAMIPRIL [Concomitant]
  6. TYKERB [Suspect]
     Indication: BREAST CANCER
     Dosage: 1250MG PER DAY
     Route: 048
     Dates: start: 20090625, end: 20110222
  7. GABAPENTIN [Concomitant]
  8. DILAUDID [Concomitant]
  9. BISOPROLOL FUMARATE [Concomitant]
  10. REGLAN [Concomitant]
  11. GRAVOL TAB [Concomitant]
  12. DIAZEPAM [Concomitant]

REACTIONS (2)
  - DIARRHOEA [None]
  - NEOPLASM MALIGNANT [None]
